FAERS Safety Report 10354620 (Version 1)
Quarter: 2014Q3

REPORT INFORMATION
  Report Type: Spontaneous
  Country: GB (occurrence: GB)
  Receive Date: 20140731
  Receipt Date: 20140731
  Transmission Date: 20150326
  Serious: Yes (Other)
  Sender: FDA-Public Use
  Company Number: GB-TEVA-496361ISR

PATIENT
  Age: 1 Month
  Sex: Female
  Weight: 4.3 kg

DRUGS (8)
  1. CEFTRIAXONE. [Concomitant]
     Active Substance: CEFTRIAXONE
     Indication: PRODUCT USED FOR UNKNOWN INDICATION
     Dosage: 340 MILLIGRAM DAILY;
     Route: 042
     Dates: start: 20140624
  2. IBUPROFEN. [Concomitant]
     Active Substance: IBUPROFEN
     Indication: PRODUCT USED FOR UNKNOWN INDICATION
     Dosage: 20MG EVERY EIGHT HOURS, WHEN REQUIRED
     Route: 048
     Dates: start: 20140624
  3. PARACETAMOL [Concomitant]
     Active Substance: ACETAMINOPHEN
     Indication: PRODUCT USED FOR UNKNOWN INDICATION
     Dosage: 60MG EVERY EIGHT HOURS, WHEN REQUIRED
     Route: 048
     Dates: start: 20140624
  4. AMOXICILLIN. [Suspect]
     Active Substance: AMOXICILLIN
     Dosage: 215MG EVERY FOUR HOURS
     Route: 041
     Dates: start: 20140624, end: 20140625
  5. AMOXICILLIN. [Suspect]
     Active Substance: AMOXICILLIN
     Indication: SEPSIS
     Dosage: 215MG EVERY FOUR HOURS
     Route: 041
     Dates: start: 20140624, end: 20140625
  6. SODIUM CHLORIDE. [Concomitant]
     Active Substance: SODIUM CHLORIDE
     Indication: INFUSION
     Route: 041
     Dates: start: 20140624
  7. NYSTATIN. [Concomitant]
     Active Substance: NYSTATIN
     Indication: PRODUCT USED FOR UNKNOWN INDICATION
     Dosage: 1 ML DAILY;
     Route: 048
     Dates: start: 20140624
  8. SODIUM CHLORIDE. [Concomitant]
     Active Substance: SODIUM CHLORIDE
     Indication: CATHETER MANAGEMENT
     Dates: start: 20140624

REACTIONS (3)
  - Off label use [Recovering/Resolving]
  - Extravasation [Recovering/Resolving]
  - Tachycardia [Recovering/Resolving]

NARRATIVE: CASE EVENT DATE: 20140624
